FAERS Safety Report 13789016 (Version 1)
Quarter: 2017Q3

REPORT INFORMATION
  Report Type: Report from Study
  Country: US (occurrence: US)
  Receive Date: 20170725
  Receipt Date: 20170725
  Transmission Date: 20171127
  Serious: Yes (Other)
  Sender: FDA-Public Use
  Company Number: US-TORRENT-00003218

PATIENT
  Age: 76 Year
  Sex: Male

DRUGS (3)
  1. SERTRALINE [Suspect]
     Active Substance: SERTRALINE HYDROCHLORIDE
  2. CETIRIZINE/CETIRIZINE HYDROCHLORIDE [Concomitant]
  3. FUROSEMIDE. [Concomitant]
     Active Substance: FUROSEMIDE

REACTIONS (2)
  - Lymphomatoid papulosis [Recovered/Resolved]
  - Dermatitis exfoliative [Recovered/Resolved]
